FAERS Safety Report 4300012-2 (Version None)
Quarter: 2004Q1

REPORT INFORMATION
  Report Type: 
  Country: None (occurrence: None)
  Receive Date: 20040218
  Receipt Date: 20040204
  Transmission Date: 20041129
  Serious: Yes (Hospitalization)
  Sender: FDA-Public Use
  Company Number: 2004AP00657

PATIENT
  Age: 70 Year
  Sex: Male

DRUGS (11)
  1. IRESSA [Suspect]
     Indication: NON-SMALL CELL LUNG CANCER
     Dosage: 250 MG DAILY PO
     Route: 048
     Dates: start: 20031210, end: 20031219
  2. LEPETAN [Concomitant]
  3. LOXONIN [Concomitant]
  4. GASTROM [Concomitant]
  5. CODEINE PHOSPHATE [Concomitant]
  6. PROTECADIN [Concomitant]
  7. NORVASC [Concomitant]
  8. MUCOSTA [Concomitant]
  9. MEVALOTIN [Concomitant]
  10. EUGLUCON [Concomitant]
  11. MAGNESIUM OXIDE [Concomitant]

REACTIONS (8)
  - CONDITION AGGRAVATED [None]
  - HEPATIC FUNCTION ABNORMAL [None]
  - HYPONATRAEMIA [None]
  - INAPPROPRIATE ANTIDIURETIC HORMONE SECRETION [None]
  - MALIGNANT NEOPLASM PROGRESSION [None]
  - NON-SMALL CELL LUNG CANCER [None]
  - PRURITUS [None]
  - SPUTUM RETENTION [None]
